FAERS Safety Report 10077321 (Version 2)
Quarter: 2014Q2

REPORT INFORMATION
  Report Type: Spontaneous
  Country: US (occurrence: US)
  Receive Date: 20140414
  Receipt Date: 20140414
  Transmission Date: 20141212
  Serious: No
  Sender: FDA-Public Use
  Company Number: US-BANPHARM-20131316

PATIENT
  Age: 65 Year
  Sex: Female
  Weight: 63.05 kg

DRUGS (3)
  1. ALEVE LIQUID GELS 220 MG [Suspect]
     Indication: HEADACHE
     Dosage: 1 DF,
     Route: 048
  2. CRESTOR [Concomitant]
  3. ARNICA LOTION [Concomitant]

REACTIONS (4)
  - Urticaria [Recovered/Resolved]
  - Rash [Recovered/Resolved]
  - Urticaria [Recovered/Resolved]
  - Eye pruritus [Recovered/Resolved]
